FAERS Safety Report 15738255 (Version 1)
Quarter: 2018Q4

REPORT INFORMATION
  Report Type: Spontaneous
  Country: US (occurrence: US)
  Receive Date: 20181219
  Receipt Date: 20181219
  Transmission Date: 20190205
  Serious: No
  Sender: FDA-Public Use
  Company Number: US-DRREDDYS-USA/USA/18/0098094

PATIENT
  Sex: Female

DRUGS (3)
  1. NICOTINE. [Suspect]
     Active Substance: NICOTINE
     Route: 062
  2. NICOTINE. [Suspect]
     Active Substance: NICOTINE
     Indication: PRODUCT USED FOR UNKNOWN INDICATION
     Route: 062
  3. NICOTINE. [Suspect]
     Active Substance: NICOTINE
     Route: 062

REACTIONS (4)
  - Pain [Unknown]
  - Application site erythema [Unknown]
  - Pain in extremity [Unknown]
  - Application site burn [Unknown]
